FAERS Safety Report 10459359 (Version 6)
Quarter: 2015Q2

REPORT INFORMATION
  Report Type: Report from Study
  Country: US (occurrence: US)
  Receive Date: 20140917
  Receipt Date: 20150624
  Transmission Date: 20150821
  Serious: Yes (Other)
  Sender: FDA-Public Use
  Company Number: US-SA-2013SA131823

PATIENT
  Age: 56 Year
  Sex: Male
  Weight: 80.74 kg

DRUGS (1)
  1. AUBAGIO [Suspect]
     Active Substance: TERIFLUNOMIDE
     Indication: MULTIPLE SCLEROSIS
     Route: 048
     Dates: start: 20130601

REACTIONS (22)
  - Self-injurious ideation [Unknown]
  - Memory impairment [Unknown]
  - Speech disorder [Unknown]
  - Vision blurred [Unknown]
  - Rash [Unknown]
  - Body surface area decreased [Unknown]
  - Cognitive disorder [Unknown]
  - Visual impairment [Recovering/Resolving]
  - Cough [Unknown]
  - Sexual dysfunction [Unknown]
  - Drug dose omission [Unknown]
  - Gait disturbance [Recovering/Resolving]
  - Disturbance in attention [Recovering/Resolving]
  - Balance disorder [Unknown]
  - Weight decreased [Not Recovered/Not Resolved]
  - Hypoaesthesia [Unknown]
  - Multiple sclerosis relapse [Unknown]
  - Skin odour abnormal [Not Recovered/Not Resolved]
  - Gait disturbance [Not Recovered/Not Resolved]
  - Diplopia [Unknown]
  - Abdominal pain upper [Unknown]
  - Nasopharyngitis [Recovering/Resolving]

NARRATIVE: CASE EVENT DATE: 201401
